FAERS Safety Report 17153301 (Version 1)
Quarter: 2019Q4

REPORT INFORMATION
  Report Type: Spontaneous
  Country: FR (occurrence: FR)
  Receive Date: 20191213
  Receipt Date: 20191213
  Transmission Date: 20200122
  Serious: Yes (Death, Other)
  Sender: FDA-Public Use
  Company Number: FR-PFIZER INC-2019536205

PATIENT
  Age: 90 Year
  Sex: Male
  Weight: 58 kg

DRUGS (8)
  1. SPECIAFOLDINE [Concomitant]
     Active Substance: FOLIC ACID
     Indication: ANAEMIA FOLATE DEFICIENCY
     Dosage: 10 MG, WEEKLY
     Route: 048
     Dates: start: 201907, end: 20191118
  2. MONOPROST [Concomitant]
     Active Substance: LATANOPROST
     Indication: GLAUCOMA
     Dosage: 1 GTT, 1X/DAY
     Route: 047
  3. KARDEGIC [Concomitant]
     Active Substance: ASPIRIN DL-LYSINE
     Indication: TEMPORAL ARTERITIS
     Dosage: 75 MG, 1X/DAY
     Route: 048
     Dates: start: 201907, end: 20191116
  4. PREDNISONE. [Suspect]
     Active Substance: PREDNISONE
     Indication: TEMPORAL ARTERITIS
     Dosage: 30 MG, 1X/DAY (INITIAL DOSAGE 40 MG/DAY)
     Route: 048
     Dates: start: 201907, end: 20191121
  5. METOJECT [Suspect]
     Active Substance: METHOTREXATE SODIUM
     Indication: TEMPORAL ARTERITIS
     Dosage: 15 MG, WEEKLY (15 MG/0.30 ML)
     Route: 058
     Dates: start: 20190920, end: 20191118
  6. SOLU-MEDROL [Suspect]
     Active Substance: METHYLPREDNISOLONE SODIUM SUCCINATE
     Dosage: 900 MG, 1X/DAY (120 MG/2 ML)
     Route: 040
     Dates: start: 20190920, end: 20190922
  7. ZOXAN LP [Concomitant]
     Active Substance: DOXAZOSIN MESYLATE
     Indication: BENIGN PROSTATIC HYPERPLASIA
     Dosage: 4 MG, 1X/DAY
     Route: 048
  8. SOLU-MEDROL [Suspect]
     Active Substance: METHYLPREDNISOLONE SODIUM SUCCINATE
     Indication: TEMPORAL ARTERITIS
     Dosage: 900 MG, 1X/DAY (120 MG/2 ML)
     Route: 040
     Dates: start: 20190718, end: 20190720

REACTIONS (4)
  - Product use in unapproved indication [Unknown]
  - Pneumonia [Fatal]
  - Off label use [Unknown]
  - Respiratory distress [Fatal]

NARRATIVE: CASE EVENT DATE: 20190718
